FAERS Safety Report 23218709 (Version 1)
Quarter: 2023Q4

REPORT INFORMATION
  Report Type: Spontaneous
  Country: IT (occurrence: None)
  Receive Date: 20231122
  Receipt Date: 20231122
  Transmission Date: 20240110
  Serious: Yes (Other)
  Sender: FDA-Public Use
  Company Number: 2023A113954

PATIENT
  Sex: Male
  Weight: 76 kg

DRUGS (3)
  1. OMEPRAZOLE [Suspect]
     Active Substance: OMEPRAZOLE
     Indication: Dyspepsia
     Route: 048
     Dates: start: 20230501, end: 20230509
  2. SOTALOL [Suspect]
     Active Substance: SOTALOL
     Indication: Extrasystoles
     Dosage: 80 MG FOR A COUPLE OF MONTHS UNKNOWN
     Dates: start: 20230301
  3. OLMESARTAN MEDOXOMIL [Concomitant]
     Active Substance: OLMESARTAN MEDOXOMIL
     Indication: Hypertension
     Dosage: FOR SEVERAL YEARS
     Route: 048

REACTIONS (1)
  - Gamma-glutamyltransferase increased [Recovered/Resolved]

NARRATIVE: CASE EVENT DATE: 20230505
